FAERS Safety Report 16894860 (Version 1)
Quarter: 2019Q4

REPORT INFORMATION
  Report Type: Report from Study
  Country: CA (occurrence: CA)
  Receive Date: 20191008
  Receipt Date: 20191008
  Transmission Date: 20200122
  Serious: No
  Sender: FDA-Public Use
  Company Number: CA-BEH-2019107700

PATIENT
  Age: 81 Year
  Sex: Male

DRUGS (2)
  1. BERINERT [Suspect]
     Active Substance: HUMAN C1-ESTERASE INHIBITOR
     Indication: HEREDITARY ANGIOEDEMA WITH C1 ESTERASE INHIBITOR DEFICIENCY
     Dosage: 1500 INTERNATIONAL UNIT, PROPHYLACTIC EVERY 5 DAYS
     Route: 058
  2. BERINERT [Suspect]
     Active Substance: HUMAN C1-ESTERASE INHIBITOR
     Indication: HEREDITARY ANGIOEDEMA WITH C1 ESTERASE INHIBITOR DEFICIENCY
     Dosage: 1500 INTERNATIONAL UNIT, PROPHYLACTIC EVERY 5 DAYS
     Route: 058

REACTIONS (5)
  - Intentional product use issue [Unknown]
  - Off label use [Unknown]
  - Injection site nodule [Recovered/Resolved with Sequelae]
  - Injection site discolouration [Recovered/Resolved with Sequelae]
  - No adverse event [Unknown]

NARRATIVE: CASE EVENT DATE: 20191001
